FAERS Safety Report 8170960-4 (Version None)
Quarter: 2012Q1

REPORT INFORMATION
  Report Type: 
  Country: None (occurrence: None)
  Receive Date: 20120104
  Receipt Date: 20111003
  Transmission Date: 20120608
  Serious: No
  Sender: FDA-Public Use
  Company Number: 2011HGS-002536

PATIENT
  Age: 56 Year
  Sex: Female
  Weight: 49.8957 kg

DRUGS (11)
  1. HYDROCODONE (HYDROCODONE) (HYDROCODONE) [Concomitant]
  2. MTX (METHOTREXATE SODIUM) (METHOTREXATE SODIUM) [Concomitant]
  3. MEDROL [Concomitant]
  4. BENLYSTA [Suspect]
     Indication: SYSTEMIC LUPUS ERYTHEMATOSUS
     Dosage: 10 MG/KG, 1 IN 4 WK, INTRAVENOUS DRIP
     Route: 041
     Dates: start: 20110802, end: 20110802
  5. ARAVA (LEFLUNOMIDE)(LEFLUNOMIDE) [Concomitant]
  6. BENLYSTA [Suspect]
  7. TRAMADOL HCL [Concomitant]
  8. CYMBALTA (ANTIDEPRESSANTS) (DULOXETINE) [Concomitant]
  9. FOLIC ACID [Concomitant]
  10. XANAX [Concomitant]
  11. ACIPHEX (RABEPRAZOLE SODIUM)(RABEPRAZOLE SODIUM) [Concomitant]

REACTIONS (5)
  - ANAPHYLACTIC REACTION [None]
  - BLOOD PRESSURE INCREASED [None]
  - URTICARIA [None]
  - PRURITUS [None]
  - THROAT IRRITATION [None]
